FAERS Safety Report 24433894 (Version 2)
Quarter: 2025Q4

REPORT INFORMATION
  Report Type: Spontaneous
  Country: US (occurrence: US)
  Receive Date: 20241014
  Receipt Date: 20251010
  Transmission Date: 20260119
  Serious: No
  Sender: SPROUT PHARMACEUTICALS
  Company Number: US-Sprout Pharmaceuticals, Inc.-2024SP000171

PATIENT

DRUGS (5)
  1. ADDYI [Suspect]
     Active Substance: FLIBANSERIN
     Dosage: SPROMC-3171, 1 PILL AT NIGHT
     Route: 048
     Dates: start: 20240313
  2. ADDYI [Suspect]
     Active Substance: FLIBANSERIN
     Indication: Libido decreased
  3. ADDYI [Suspect]
     Active Substance: FLIBANSERIN
     Indication: Sleep disorder
  4. PROGESTERONE [Concomitant]
     Active Substance: PROGESTERONE
     Indication: Product used for unknown indication
     Dosage: UNK UNK
  5. SPIRONOLACTONE [Concomitant]
     Active Substance: SPIRONOLACTONE
     Indication: Product used for unknown indication
     Dosage: UNK UNK

REACTIONS (4)
  - Abnormal dreams [Recovering/Resolving]
  - Therapeutic response unexpected [Recovered/Resolved]
  - Product use in unapproved indication [Unknown]
  - Drug ineffective [Not Recovered/Not Resolved]

NARRATIVE: CASE EVENT DATE: 20240314
